FAERS Safety Report 10228046 (Version 1)
Quarter: 2014Q2

REPORT INFORMATION
  Report Type: Spontaneous
  Country: US (occurrence: US)
  Receive Date: 20140610
  Receipt Date: 20140610
  Transmission Date: 20141212
  Serious: Yes (Other)
  Sender: FDA-Public Use
  Company Number: US-PFIZER INC-2014157530

PATIENT
  Age: 69 Year
  Sex: Male
  Weight: 78.01 kg

DRUGS (12)
  1. CELEBREX [Suspect]
     Indication: NEUROPATHY PERIPHERAL
     Dosage: 200 MG, 2X/DAY
     Route: 048
     Dates: start: 2011, end: 201401
  2. CELEBREX [Suspect]
     Indication: ARTHRITIS
  3. ACETAMINOPHEN [Concomitant]
     Dosage: UNK
  4. METOPROLOL [Concomitant]
     Indication: HYPERTENSION
     Dosage: 50 MG, 2X/DAY
  5. CODEINE [Concomitant]
     Dosage: UNK
  6. BACLOFEN [Concomitant]
     Indication: MUSCLE RELAXANT THERAPY
     Dosage: 100 MG, AS NEEDED
  7. HYDROCHLOROTHIAZIDE [Concomitant]
     Dosage: 25 MG, 1X/DAY
  8. LISINOPRIL [Concomitant]
     Indication: HYPERTENSION
     Dosage: 10 MG, UNK
     Route: 048
  9. MELOXICAM [Concomitant]
     Dosage: 7.5 MG, 2X/DAY
  10. ATORVASTATIN [Concomitant]
     Dosage: 20MG ONCE A DAY AT NIGHT
  11. MECLIZINE [Concomitant]
     Dosage: 25 MG, 2X/DAY
  12. FISH OIL [Concomitant]
     Dosage: ONCE A DAY

REACTIONS (1)
  - Diabetes mellitus [Unknown]
